FAERS Safety Report 8490545-X (Version None)
Quarter: 2012Q3

REPORT INFORMATION
  Report Type: 
  Country: None (occurrence: None)
  Receive Date: 20120705
  Receipt Date: 20120626
  Transmission Date: 20120928
  Serious: Yes (Other)
  Sender: FDA-Public Use
  Company Number: US-ABBOTT-12P-163-0945798-00

PATIENT
  Age: 47 Year
  Sex: Female

DRUGS (6)
  1. CHLORAMPHENICOL [Suspect]
     Indication: CELLULITIS
     Dates: start: 20120501
  2. HUMIRA [Suspect]
     Indication: RHEUMATOID ARTHRITIS
     Route: 058
     Dates: start: 20070101, end: 20100101
  3. VITAMIN D [Concomitant]
     Indication: PRODUCT USED FOR UNKNOWN INDICATION
  4. CLINDAMYCIN [Suspect]
     Indication: CELLULITIS
     Dates: start: 20120501
  5. HUMIRA [Suspect]
     Route: 058
     Dates: start: 20100101
  6. FOLIC ACID [Concomitant]
     Indication: PRODUCT USED FOR UNKNOWN INDICATION

REACTIONS (13)
  - DIARRHOEA [None]
  - CELLULITIS [None]
  - JOINT LOCK [None]
  - INJECTION SITE PAIN [None]
  - BIPOLAR DISORDER [None]
  - BLADDER DISORDER [None]
  - TYPE 1 DIABETES MELLITUS [None]
  - DIABETIC NEUROPATHY [None]
  - BLOOD CHOLESTEROL INCREASED [None]
  - GASTROOESOPHAGEAL REFLUX DISEASE [None]
  - JOINT EFFUSION [None]
  - DRUG INEFFECTIVE [None]
  - RHEUMATOID ARTHRITIS [None]
